FAERS Safety Report 8474136-2 (Version None)
Quarter: 2012Q2

REPORT INFORMATION
  Report Type: 
  Country: None (occurrence: None)
  Receive Date: 20120628
  Receipt Date: 20120625
  Transmission Date: 20120825
  Serious: No
  Sender: FDA-Public Use
  Company Number: US-PFIZER INC-2012152994

PATIENT
  Sex: Male
  Weight: 77.098 kg

DRUGS (2)
  1. TESTIM [Concomitant]
     Indication: BLOOD TESTOSTERONE DECREASED
     Dosage: UNK
  2. VIAGRA [Suspect]
     Indication: ERECTILE DYSFUNCTION
     Dosage: 50 MG, COUPLE OF TIMES IN A WEEK
     Route: 048

REACTIONS (3)
  - FLUSHING [None]
  - ERYTHEMA [None]
  - DRUG INEFFECTIVE [None]
